FAERS Safety Report 10714498 (Version 1)
Quarter: 2015Q1

REPORT INFORMATION
  Report Type: Report from Study
  Country: IT (occurrence: IT)
  Receive Date: 20150115
  Receipt Date: 20150115
  Transmission Date: 20150721
  Serious: Yes (Death)
  Sender: FDA-Public Use
  Company Number: IT-ABBVIE-14P-083-1315197-00

PATIENT
  Sex: Male
  Weight: 72 kg

DRUGS (1)
  1. DUODOPA [Suspect]
     Active Substance: CARBIDOPA\LEVODOPA
     Indication: PARKINSON^S DISEASE
     Dosage: MD 6,0 (+3);CR 1,9;ED 1,5
     Route: 050
     Dates: start: 20121029, end: 20141115

REACTIONS (2)
  - Pneumonia aspiration [Fatal]
  - Kidney infection [Fatal]
